FAERS Safety Report 24065931 (Version 5)
Quarter: 2024Q3

REPORT INFORMATION
  Report Type: Spontaneous
  Country: US (occurrence: US)
  Receive Date: 20240709
  Receipt Date: 20240926
  Transmission Date: 20241016
  Serious: No
  Sender: ROCHE
  Company Number: US-ROCHE-10000020336

PATIENT
  Age: 8 Year
  Sex: Male
  Weight: 35.38 kg

DRUGS (4)
  1. HEMLIBRA [Suspect]
     Active Substance: EMICIZUMAB-KXWH
     Indication: Factor VIII deficiency
     Dosage: 60MG/0.4ML
     Route: 058
     Dates: start: 202211
  2. HEMLIBRA [Suspect]
     Active Substance: EMICIZUMAB-KXWH
     Dosage: 60MG/0.4ML
     Route: 058
     Dates: start: 202211
  3. NUWIQ [Concomitant]
     Active Substance: ANTIHEMOPHILIC FACTOR, HUMAN RECOMBINANT
  4. AMINOCAPROIC ACID ORAL SOLUTION [Concomitant]
     Route: 048

REACTIONS (1)
  - Epistaxis [Unknown]

NARRATIVE: CASE EVENT DATE: 20240722
